FAERS Safety Report 5123989-4 (Version None)
Quarter: 2006Q3

REPORT INFORMATION
  Report Type: 
  Country: None (occurrence: None)
  Receive Date: 20060811
  Receipt Date: 20060421
  Transmission Date: 20061208
  Serious: No
  Sender: FDA-Public Use
  Company Number: S06-USA-01632-01

PATIENT
  Age: 78 Year
  Sex: Female

DRUGS (7)
  1. NAMENDA [Suspect]
     Indication: DEMENTIA ALZHEIMER'S TYPE
     Dosage: 10 MG BID PO
     Route: 048
     Dates: start: 20050301
  2. LEXAPRO [Suspect]
     Indication: DEPRESSION
     Dosage: 10 MG QD PO
     Route: 048
     Dates: start: 20051101
  3. GRAPEFRUIT JUICE [Suspect]
     Dates: start: 20060301
  4. ARICEPT [Concomitant]
  5. DIGOXIN [Concomitant]
  6. COUMADIN [Concomitant]
  7. FOSAMAX [Concomitant]

REACTIONS (3)
  - DEPRESSION [None]
  - FOOD INTERACTION [None]
  - RETCHING [None]
